FAERS Safety Report 5369427-8 (Version None)
Quarter: 2007Q2

REPORT INFORMATION
  Report Type: 
  Country: None (occurrence: None)
  Receive Date: 20070625
  Receipt Date: 20070612
  Transmission Date: 20071010
  Serious: Yes (Death, Life-Threatening, Other)
  Sender: FDA-Public Use
  Company Number: US-ELI_LILLY_AND_COMPANY-US200705003137

PATIENT
  Age: 45 Year
  Sex: Male
  Weight: 61.678 kg

DRUGS (20)
  1. ZYPREXA [Suspect]
     Indication: IMPULSE-CONTROL DISORDER
     Dosage: 5 MG, EACH EVENING
     Dates: start: 19990101
  2. BACTRIM [Concomitant]
     Dosage: UNK, OTHER
     Route: 048
  3. COLACE [Concomitant]
     Dosage: 100 MG, DAILY (1/D)
     Route: 048
  4. FOLIC ACID [Concomitant]
     Dosage: 1 MG, DAILY (1/D)
     Route: 048
  5. DITROPAN XL [Concomitant]
     Dosage: 5 MG, DAILY (1/D)
     Route: 048
  6. PRILOSEC [Concomitant]
     Dosage: 20 MG, DAILY (1/D)
     Route: 048
  7. CELEXA [Concomitant]
     Dosage: 20 MG, DAILY (1/D)
     Route: 048
  8. FLUCONAZOLE [Concomitant]
     Dosage: 100 MG, DAILY (1/D)
     Route: 048
  9. ACYCLOVIR [Concomitant]
     Dosage: 400 MG, 2/D
     Route: 048
  10. TYLENOL /USA/ [Concomitant]
  11. INTERFERON ALFA [Concomitant]
     Dosage: UNK, 2/W
  12. INTERFERON ALFA [Concomitant]
     Dosage: 300000 U, OTHER
     Route: 058
  13. NAPROSYN [Concomitant]
     Dosage: 500 MG, 2/D
     Dates: start: 20060824
  14. TYLENOL W/ CODEINE [Concomitant]
     Dosage: UNK, EACH EVENING
     Dates: start: 20060824
  15. EPOETIN NOS [Concomitant]
  16. CLONAZEPAM [Concomitant]
     Dates: start: 19990101
  17. THIORIDAZINE HCL [Concomitant]
     Indication: ANXIETY
     Dates: end: 19990101
  18. DEPAKOTE [Concomitant]
     Dates: start: 19990101
  19. MIACALCIN [Concomitant]
     Route: 045
     Dates: start: 20060824
  20. CALCIUM CARBONATE + VITAMIN D [Concomitant]
     Dates: start: 20060824

REACTIONS (17)
  - ABNORMAL BEHAVIOUR [None]
  - ANAEMIA [None]
  - CONVULSION [None]
  - DECREASED ACTIVITY [None]
  - DECREASED APPETITE [None]
  - DEPRESSION [None]
  - DRUG INTERACTION [None]
  - DRUG LEVEL INCREASED [None]
  - FALL [None]
  - MULTIPLE FRACTURES [None]
  - MULTIPLE MYELOMA [None]
  - NEPHROSCLEROSIS [None]
  - NODULE [None]
  - PLEURAL ADHESION [None]
  - RESPIRATORY DISTRESS [None]
  - VOMITING [None]
  - WEIGHT DECREASED [None]
